FAERS Safety Report 13656598 (Version 10)
Quarter: 2018Q3

REPORT INFORMATION
  Report Type: Report from Study
  Country: CN (occurrence: CN)
  Receive Date: 20170615
  Receipt Date: 20180821
  Transmission Date: 20181010
  Serious: Yes (Hospitalization, Other)
  Sender: FDA-Public Use
  Company Number: PHHY2017CN053858

PATIENT
  Age: 37 Year
  Sex: Male
  Weight: 70 kg

DRUGS (108)
  1. BASILIXIMAB [Suspect]
     Active Substance: BASILIXIMAB
     Indication: RENAL TRANSPLANT
     Dosage: 20 MG, QD
     Route: 065
     Dates: start: 20161118, end: 20161118
  2. PREDNISONE. [Suspect]
     Active Substance: PREDNISONE
     Dosage: 10 MG, QD
     Route: 065
     Dates: start: 20170616, end: 20170621
  3. TACROLIMUS. [Suspect]
     Active Substance: TACROLIMUS
     Indication: IMMUNOSUPPRESSANT DRUG THERAPY
     Dosage: 7 MG, QD
     Route: 065
     Dates: start: 20161118, end: 20161118
  4. TACROLIMUS. [Suspect]
     Active Substance: TACROLIMUS
     Dosage: 7 MG, QD
     Route: 065
     Dates: start: 20161120, end: 20161123
  5. TACROLIMUS. [Suspect]
     Active Substance: TACROLIMUS
     Dosage: 6 MG, QD
     Route: 065
     Dates: start: 20161208
  6. TACROLIMUS. [Suspect]
     Active Substance: TACROLIMUS
     Dosage: 1 MG, QD
     Route: 065
     Dates: start: 20171109
  7. BACILLUS LICHENFORMIS [Concomitant]
     Dosage: 2 DF, TID
     Route: 065
     Dates: start: 20170520, end: 20170709
  8. CEFOXITIN SODIUM [Concomitant]
     Active Substance: CEFOXITIN SODIUM
     Dosage: 2 G, QD
     Route: 042
     Dates: start: 20161118, end: 20161118
  9. INSULIN [Concomitant]
     Active Substance: INSULIN NOS
     Dosage: 2.5 U, UNK
     Route: 065
     Dates: start: 20170520, end: 20170521
  10. NORADRENALINE [Concomitant]
     Active Substance: NOREPINEPHRINE
     Indication: BLOOD PRESSURE INCREASED
     Dosage: 4 MG, QD
     Route: 042
     Dates: start: 20161118, end: 20161118
  11. AMLODIPINE BESILATE [Concomitant]
     Active Substance: AMLODIPINE BESYLATE
     Indication: HYPERTENSION
     Dosage: 5 MG, QD
     Route: 065
     Dates: start: 20170623, end: 20170625
  12. TOLTERODINE TARTRATE. [Concomitant]
     Active Substance: TOLTERODINE TARTRATE
     Indication: CONVULSION PROPHYLAXIS
     Dosage: 4 MG, QD
     Route: 048
     Dates: start: 20161119, end: 20161119
  13. TORASEMIDE [Concomitant]
     Active Substance: TORSEMIDE
     Indication: POLYURIA
     Dosage: 10 MG, BID
     Route: 048
     Dates: start: 20161128, end: 20161211
  14. MYFORTIC [Suspect]
     Active Substance: MYCOPHENOLATE SODIUM
     Indication: IMMUNOSUPPRESSANT DRUG THERAPY
     Dosage: 2160 MG, QD
     Route: 048
     Dates: start: 20161118, end: 20161118
  15. MYFORTIC [Suspect]
     Active Substance: MYCOPHENOLATE SODIUM
     Dosage: 1800 MG, QD
     Route: 048
     Dates: start: 20170412
  16. MYFORTIC [Suspect]
     Active Substance: MYCOPHENOLATE SODIUM
     Dosage: 1080 MG, QD
     Route: 048
     Dates: start: 20170426, end: 20170517
  17. MYFORTIC [Suspect]
     Active Substance: MYCOPHENOLATE SODIUM
     Dosage: 720 MG, QD
     Route: 048
     Dates: start: 20170518, end: 20170519
  18. MYFORTIC [Suspect]
     Active Substance: MYCOPHENOLATE SODIUM
     Dosage: 360 MG, UNK
     Route: 048
     Dates: start: 20170717, end: 20171205
  19. PREDNISONE. [Suspect]
     Active Substance: PREDNISONE
     Indication: IMMUNOSUPPRESSANT DRUG THERAPY
     Dosage: 30 MG, QD
     Route: 065
     Dates: start: 20161121, end: 20161121
  20. PREDNISONE. [Suspect]
     Active Substance: PREDNISONE
     Dosage: 30 MG, QD
     Route: 065
     Dates: start: 20161122, end: 20161129
  21. PREDNISONE. [Suspect]
     Active Substance: PREDNISONE
     Dosage: 10 MG, QD
     Route: 065
     Dates: start: 20170519, end: 20170614
  22. TACROLIMUS. [Suspect]
     Active Substance: TACROLIMUS
     Dosage: 0.5 MG, QD
     Route: 065
     Dates: start: 20170613, end: 20170614
  23. TACROLIMUS. [Suspect]
     Active Substance: TACROLIMUS
     Dosage: 1 MG, QD
     Route: 065
     Dates: start: 20170628, end: 20170717
  24. CEFOXITIN SODIUM [Concomitant]
     Active Substance: CEFOXITIN SODIUM
     Dosage: 2 G, BID
     Route: 042
     Dates: start: 20161118
  25. FENTANYL CITRATE. [Concomitant]
     Active Substance: FENTANYL CITRATE
     Indication: ANAESTHESIA
     Dosage: 150 UG, QD
     Route: 042
     Dates: start: 20161118, end: 20161118
  26. INSULIN [Concomitant]
     Active Substance: INSULIN NOS
     Indication: BLOOD GLUCOSE INCREASED
     Dosage: 6 U, QD
     Route: 042
     Dates: start: 20161118, end: 20161118
  27. MIDAZOLAM [Concomitant]
     Active Substance: MIDAZOLAM HYDROCHLORIDE
     Indication: ANAESTHESIA
     Dosage: 1 MG, QD
     Route: 042
     Dates: start: 20161118, end: 20161118
  28. NADROPARIN CALCIUM [Concomitant]
     Active Substance: NADROPARIN CALCIUM
     Indication: THROMBOSIS PROPHYLAXIS
     Dosage: 0.3 ML, QD
     Route: 042
     Dates: start: 20161119, end: 20161119
  29. NADROPARIN CALCIUM [Concomitant]
     Active Substance: NADROPARIN CALCIUM
     Dosage: 0.3 ML, BID
     Route: 042
     Dates: start: 20161122, end: 20161211
  30. NICARDIPINE HYDROCHLORIDE. [Concomitant]
     Active Substance: NICARDIPINE HYDROCHLORIDE
     Indication: BLOOD PRESSURE INCREASED
     Dosage: 40 MG, QD
     Route: 048
     Dates: start: 20161125, end: 20161125
  31. PANTOPRAZOLE SODIUM. [Concomitant]
     Active Substance: PANTOPRAZOLE SODIUM
     Dosage: 40 MG, BID
     Route: 042
     Dates: start: 20161118
  32. PROPOFOL. [Concomitant]
     Active Substance: PROPOFOL
     Indication: ANAESTHESIA
     Dosage: 0.5 G, QD
     Route: 042
     Dates: start: 20161118, end: 20161118
  33. SMECTITE [Concomitant]
     Active Substance: MONTMORILLONITE
     Dosage: 3 G, QD
     Route: 048
     Dates: start: 20161121, end: 20161123
  34. MYFORTIC [Suspect]
     Active Substance: MYCOPHENOLATE SODIUM
     Dosage: 2160 MG, QD
     Route: 048
     Dates: start: 20161119, end: 20161128
  35. TACROLIMUS. [Suspect]
     Active Substance: TACROLIMUS
     Dosage: 2 MG, QD
     Route: 065
     Dates: start: 20170523, end: 20170530
  36. CISATRACURIUM BESILATE [Concomitant]
     Active Substance: CISATRACURIUM BESYLATE
     Indication: ANAESTHESIA
     Dosage: 30 MG, QD
     Route: 042
     Dates: start: 20161118, end: 20161118
  37. FUROSEMIDE. [Concomitant]
     Active Substance: FUROSEMIDE
     Dosage: 5 MG, QD
     Route: 065
     Dates: start: 20170520, end: 20170521
  38. LIDOCAINE HYDROCHLORIDE. [Concomitant]
     Active Substance: LIDOCAINE HYDROCHLORIDE
     Indication: ANAESTHESIA
     Dosage: 5 ML, QD
     Route: 042
     Dates: start: 20161118, end: 20161118
  39. METOPROLOL TARTRATE. [Concomitant]
     Active Substance: METOPROLOL TARTRATE
     Indication: BLOOD PRESSURE INCREASED
     Dosage: 25 MG, BID
     Route: 048
     Dates: start: 20161123
  40. NICARDIPINE HYDROCHLORIDE. [Concomitant]
     Active Substance: NICARDIPINE HYDROCHLORIDE
     Dosage: 40 MG, BID
     Route: 048
     Dates: start: 20161125
  41. MOSAPRIDE CITRATE [Concomitant]
     Active Substance: MOSAPRIDE CITRATE
     Indication: PROPHYLAXIS
     Dosage: 5 MG, TID
     Route: 065
     Dates: start: 20170520, end: 20170610
  42. PANTOPRAZOLE SODIUM. [Concomitant]
     Active Substance: PANTOPRAZOLE SODIUM
     Indication: PROPHYLAXIS
     Dosage: 40 MG, BID
     Route: 042
     Dates: start: 20161118, end: 20161118
  43. SMECTITE [Concomitant]
     Active Substance: MONTMORILLONITE
     Indication: PROPHYLAXIS AGAINST DIARRHOEA
     Dosage: 6 G, QD
     Route: 048
     Dates: start: 20161120, end: 20161120
  44. AMLODIPINE BESILATE [Concomitant]
     Active Substance: AMLODIPINE BESYLATE
     Dosage: 10 MG, QD
     Route: 065
     Dates: start: 20170626, end: 20170703
  45. TORASEMIDE [Concomitant]
     Active Substance: TORSEMIDE
     Dosage: 20 MG, BID
     Route: 042
     Dates: start: 20161120, end: 20161120
  46. MYFORTIC [Suspect]
     Active Substance: MYCOPHENOLATE SODIUM
     Dosage: 900 MG, UNK
     Route: 048
     Dates: start: 20171206
  47. TACROLIMUS. [Suspect]
     Active Substance: TACROLIMUS
     Dosage: 8 MG, QD
     Route: 065
     Dates: start: 20161124, end: 20161129
  48. TACROLIMUS. [Suspect]
     Active Substance: TACROLIMUS
     Dosage: 7 MG, QD
     Route: 065
     Dates: start: 20161207, end: 20161207
  49. ALPROSTADIL. [Concomitant]
     Active Substance: ALPROSTADIL
     Indication: VASODILATATION
     Dosage: 10 UG, QD
     Route: 042
     Dates: start: 20161120, end: 20161120
  50. ALPROSTADIL. [Concomitant]
     Active Substance: ALPROSTADIL
     Dosage: 10 UG, QD
     Route: 042
     Dates: start: 20161204, end: 20161204
  51. GENTAMICIN SULFATE. [Concomitant]
     Active Substance: GENTAMICIN SULFATE
     Indication: ANTIBIOTIC PROPHYLAXIS
     Dosage: 16 OT (WIU), QD
     Route: 042
     Dates: start: 20161118, end: 20161118
  52. INSULIN [Concomitant]
     Active Substance: INSULIN NOS
     Dosage: 5 U, UNK
     Route: 065
     Dates: start: 20170623, end: 20170625
  53. MOSAPRIDE CITRATE [Concomitant]
     Active Substance: MOSAPRIDE CITRATE
     Indication: DYSPEPSIA
     Dosage: 5 MG, BID
     Route: 048
     Dates: start: 20161120
  54. NADROPARIN CALCIUM [Concomitant]
     Active Substance: NADROPARIN CALCIUM
     Dosage: 0.3 ML, QD
     Route: 058
     Dates: start: 20161119, end: 20161121
  55. TROPISETRON HYDROCHLORIDE [Concomitant]
     Active Substance: TROPISETRON HYDROCHLORIDE
     Indication: VOMITING
     Dosage: 15 MG, QD
     Route: 042
     Dates: start: 20161118, end: 20161118
  56. MYFORTIC [Suspect]
     Active Substance: MYCOPHENOLATE SODIUM
     Indication: RENAL TRANSPLANT
     Dosage: 1080 MG, QD
     Route: 048
     Dates: start: 20161117, end: 20161117
  57. METHYLPREDNISOLONE. [Suspect]
     Active Substance: METHYLPREDNISOLONE
     Dosage: 30 MG, QD
     Route: 065
     Dates: start: 20170622, end: 20170630
  58. TACROLIMUS. [Suspect]
     Active Substance: TACROLIMUS
     Dosage: 7.5 MG, QD
     Route: 065
     Dates: start: 20161130, end: 20161206
  59. TACROLIMUS. [Suspect]
     Active Substance: TACROLIMUS
     Dosage: 1 MG, QD
     Route: 065
     Dates: start: 20170817, end: 20171025
  60. TACROLIMUS. [Suspect]
     Active Substance: TACROLIMUS
     Dosage: 2 MG, QD
     Route: 065
     Dates: start: 20171026, end: 20171101
  61. FUROSEMIDE. [Concomitant]
     Active Substance: FUROSEMIDE
     Dosage: 20 MG, QD
     Route: 042
     Dates: start: 20161118, end: 20161120
  62. REMIFENTANIL HYDROCHLORIDE. [Concomitant]
     Active Substance: REMIFENTANIL HYDROCHLORIDE
     Indication: ANAESTHESIA
     Dosage: 3 MG, QD
     Route: 042
     Dates: start: 20161118, end: 20161118
  63. URAPIDIL HYDROCHLORIDE [Concomitant]
     Active Substance: URAPIDIL HYDROCHLORIDE
     Indication: HYPERTENSION
     Dosage: 8 ML/HR
     Route: 065
     Dates: start: 20170623, end: 20170623
  64. SODIUM BICARBONATE. [Concomitant]
     Active Substance: SODIUM BICARBONATE
     Dosage: 1 G, BID
     Route: 065
     Dates: start: 20170710
  65. MYFORTIC [Suspect]
     Active Substance: MYCOPHENOLATE SODIUM
     Dosage: 1440 MG, QD
     Route: 048
     Dates: start: 20161129, end: 20170316
  66. METHYLPREDNISOLONE. [Suspect]
     Active Substance: METHYLPREDNISOLONE
     Dosage: 30 MG, QD
     Route: 065
     Dates: start: 20170615, end: 20170615
  67. METHYLPREDNISOLONE. [Suspect]
     Active Substance: METHYLPREDNISOLONE
     Dosage: 20 MG, QD
     Route: 065
     Dates: start: 20170710, end: 20170814
  68. PREDNISONE. [Suspect]
     Active Substance: PREDNISONE
     Dosage: 25 MG, QD
     Route: 065
     Dates: start: 20161130, end: 20161206
  69. PREDNISONE. [Suspect]
     Active Substance: PREDNISONE
     Dosage: 25 MG, QD
     Route: 065
     Dates: start: 20161207
  70. TACROLIMUS. [Suspect]
     Active Substance: TACROLIMUS
     Dosage: 9 MG, QD
     Route: 065
     Dates: start: 20161119, end: 20161119
  71. TACROLIMUS. [Suspect]
     Active Substance: TACROLIMUS
     Dosage: 4 MG, QD
     Route: 065
     Dates: start: 20170718, end: 20170802
  72. ATROPINE SULFATE. [Concomitant]
     Active Substance: ATROPINE SULFATE
     Indication: PRODUCT USED FOR UNKNOWN INDICATION
     Dosage: 1 MG, QD
     Route: 058
     Dates: start: 20161118, end: 20161118
  73. CEFOXITIN SODIUM [Concomitant]
     Active Substance: CEFOXITIN SODIUM
     Indication: INFECTION PROPHYLAXIS
     Dosage: 1 G, BID
     Route: 042
     Dates: start: 20161117, end: 20161117
  74. CIPROFLOXACIN HYDROCHLORIDE. [Concomitant]
     Active Substance: CIPROFLOXACIN HYDROCHLORIDE
     Indication: ANTIBIOTIC PROPHYLAXIS
     Dosage: 2 DF, QD
     Route: 061
     Dates: start: 20161130, end: 20161130
  75. FUROSEMIDE. [Concomitant]
     Active Substance: FUROSEMIDE
     Indication: POLYURIA
     Dosage: 20 MG, QD
     Route: 042
     Dates: start: 20161118, end: 20161118
  76. FUROSEMIDE. [Concomitant]
     Active Substance: FUROSEMIDE
     Dosage: 5 MG, QD
     Route: 065
     Dates: start: 20170601, end: 20170602
  77. HEPARIN SODIUM. [Concomitant]
     Active Substance: HEPARIN SODIUM
     Indication: DEVICE ISSUE
     Dosage: 50000 U, QD
     Route: 042
     Dates: start: 20161118, end: 20161118
  78. MANNITOL. [Concomitant]
     Active Substance: MANNITOL
     Indication: POLYURIA
     Dosage: 250 ML, QD
     Route: 042
     Dates: start: 20161118, end: 20161118
  79. PANTOPRAZOLE SODIUM. [Concomitant]
     Active Substance: PANTOPRAZOLE SODIUM
     Dosage: 40 MG, Q12H
     Route: 065
     Dates: start: 20170520, end: 20170622
  80. BETALOC [Concomitant]
     Active Substance: METOPROLOL TARTRATE
     Indication: HYPERTENSION
     Dosage: 12.5 MG, BID
     Route: 065
     Dates: start: 20170626, end: 20171025
  81. IRBESARTAN. [Concomitant]
     Active Substance: IRBESARTAN
     Indication: HYPERTENSION
     Dosage: 0.15 G, QD
     Route: 065
     Dates: start: 20170626, end: 20170703
  82. TOLTERODINE TARTRATE. [Concomitant]
     Active Substance: TOLTERODINE TARTRATE
     Indication: PAIN
  83. MYFORTIC [Suspect]
     Active Substance: MYCOPHENOLATE SODIUM
     Dosage: 360 MG, QD
     Route: 048
     Dates: start: 20170520, end: 20170601
  84. METHYLPREDNISOLONE. [Suspect]
     Active Substance: METHYLPREDNISOLONE
     Dosage: 28 MG, QD
     Route: 065
     Dates: start: 20170702, end: 20170709
  85. TACROLIMUS. [Suspect]
     Active Substance: TACROLIMUS
     Dosage: 1.5 MG, QD
     Route: 065
     Dates: start: 20170531, end: 20170531
  86. TACROLIMUS. [Suspect]
     Active Substance: TACROLIMUS
     Dosage: 1 MG, QD
     Route: 065
     Dates: start: 20170601, end: 20170612
  87. TACROLIMUS. [Suspect]
     Active Substance: TACROLIMUS
     Dosage: 0.75 MG, QD
     Route: 065
     Dates: start: 20170803, end: 20170816
  88. BACILLUS LICHENFORMIS [Concomitant]
     Indication: PROPHYLAXIS AGAINST DIARRHOEA
     Dosage: 0.25 G, TID
     Route: 048
     Dates: start: 20161120, end: 20161123
  89. MOSAPRIDE CITRATE [Concomitant]
     Active Substance: MOSAPRIDE CITRATE
     Dosage: 5 MG, TID
     Route: 065
     Dates: start: 20170520, end: 20170610
  90. OMEPRAZOLE. [Concomitant]
     Active Substance: OMEPRAZOLE
     Indication: PROPHYLAXIS
     Dosage: 5 MG, EVERY HOURS
     Route: 065
     Dates: start: 20170623, end: 20170625
  91. SODIUM BICARBONATE. [Concomitant]
     Active Substance: SODIUM BICARBONATE
     Indication: PROPHYLAXIS
     Dosage: 0.5 G, TID
     Route: 048
     Dates: start: 20161202, end: 20161211
  92. TORASEMIDE [Concomitant]
     Active Substance: TORSEMIDE
     Dosage: 10 MG, BID
     Route: 042
     Dates: start: 20161119, end: 20161127
  93. TRAMADOL HYDROCHLORIDE. [Concomitant]
     Active Substance: TRAMADOL HYDROCHLORIDE
     Indication: ANAESTHESIA
     Dosage: 0.1 G, QD
     Route: 042
     Dates: start: 20161118, end: 20161118
  94. BASILIXIMAB [Suspect]
     Active Substance: BASILIXIMAB
     Dosage: 20 MG, QD
     Route: 065
     Dates: start: 20161122, end: 20161122
  95. METHYLPREDNISOLONE. [Suspect]
     Active Substance: METHYLPREDNISOLONE
     Indication: IMMUNOSUPPRESSANT DRUG THERAPY
     Dosage: 500 MG, QD
     Route: 065
     Dates: start: 20161119, end: 20161119
  96. METHYLPREDNISOLONE. [Suspect]
     Active Substance: METHYLPREDNISOLONE
     Indication: ANTI-INFECTIVE THERAPY
     Dosage: 500 MG, QD
     Route: 065
     Dates: start: 20161120, end: 20161121
  97. TACROLIMUS. [Suspect]
     Active Substance: TACROLIMUS
     Dosage: 2 MG, QD
     Route: 065
     Dates: start: 20170518, end: 20170519
  98. TACROLIMUS. [Suspect]
     Active Substance: TACROLIMUS
     Dosage: 2.5 MG, QD
     Route: 065
     Dates: start: 20170520, end: 20170522
  99. TACROLIMUS. [Suspect]
     Active Substance: TACROLIMUS
     Dosage: 0.5 MG, QD
     Route: 065
     Dates: start: 20170626, end: 20170626
  100. TACROLIMUS. [Suspect]
     Active Substance: TACROLIMUS
     Dosage: 4 MG, QD
     Route: 065
     Dates: start: 20171102, end: 20171108
  101. AMBROXOL HYDROCHLORIDE [Concomitant]
     Active Substance: AMBROXOL HYDROCHLORIDE
     Indication: PROPHYLAXIS
     Dosage: 60 MG, QD
     Route: 042
     Dates: start: 20161118, end: 20161118
  102. FELODIPINE. [Concomitant]
     Active Substance: FELODIPINE
     Indication: BLOOD PRESSURE INCREASED
     Dosage: 5 MG, BID
     Route: 048
     Dates: start: 20161121
  103. GLYCERIN. [Concomitant]
     Active Substance: GLYCERIN
     Indication: CONSTIPATION
     Dosage: 1 DF, QD
     Route: 065
     Dates: start: 20161117, end: 20161117
  104. INSULIN [Concomitant]
     Active Substance: INSULIN NOS
     Dosage: 8 U, UNK
     Route: 065
     Dates: start: 20170223
  105. OMEPRAZOLE. [Concomitant]
     Active Substance: OMEPRAZOLE
     Dosage: 40 MG, Q12H
     Route: 065
     Dates: start: 20170626, end: 20170709
  106. URAPIDIL HYDROCHLORIDE [Concomitant]
     Active Substance: URAPIDIL HYDROCHLORIDE
     Dosage: 14 ML/HR
     Route: 065
     Dates: start: 20170624, end: 20170625
  107. SODIUM BICARBONATE. [Concomitant]
     Active Substance: SODIUM BICARBONATE
     Indication: PRODUCT USED FOR UNKNOWN INDICATION
     Dosage: 250 ML, QD
     Route: 042
     Dates: start: 20161118, end: 20161118
  108. TORASEMIDE [Concomitant]
     Active Substance: TORSEMIDE
     Indication: POLYURIA
     Dosage: 10 MG, QD
     Route: 042
     Dates: start: 20161119, end: 20161119

REACTIONS (31)
  - Musculoskeletal chest pain [Recovered/Resolved]
  - Pyrexia [Recovered/Resolved]
  - Proctalgia [Recovered/Resolved]
  - Blood creatinine increased [Unknown]
  - Peripheral artery occlusion [Recovered/Resolved]
  - Sciatic nerve injury [Recovered/Resolved]
  - Anal abscess [Recovered/Resolved]
  - Lung infection [Recovered/Resolved]
  - Low density lipoprotein increased [Unknown]
  - Dyspnoea [Recovered/Resolved]
  - Chills [Recovered/Resolved]
  - Metabolic acidosis [Recovered/Resolved]
  - Oxygen saturation decreased [Recovered/Resolved]
  - Fatigue [Recovered/Resolved]
  - White blood cell count decreased [Recovered/Resolved]
  - Blood urea increased [Unknown]
  - Protein urine present [Recovered/Resolved]
  - Pneumocystis jirovecii pneumonia [Recovered/Resolved]
  - Haematochezia [Recovered/Resolved]
  - Pneumonia fungal [Recovered/Resolved]
  - Overdose [Unknown]
  - Productive cough [Recovered/Resolved]
  - Asthenia [Recovered/Resolved]
  - Red blood cells urine positive [Recovering/Resolving]
  - Chronic gastritis [Recovered/Resolved]
  - Pyrexia [Recovered/Resolved]
  - Cough [Recovered/Resolved]
  - Diarrhoea [Recovered/Resolved]
  - Chills [Recovered/Resolved]
  - Leukopenia [Recovered/Resolved]
  - Anal fissure [Recovered/Resolved]

NARRATIVE: CASE EVENT DATE: 20161118
